FAERS Safety Report 4883738-1 (Version None)
Quarter: 2006Q1

REPORT INFORMATION
  Report Type: 
  Country: None (occurrence: None)
  Receive Date: 20060118
  Receipt Date: 20060109
  Transmission Date: 20060701
  Serious: Yes (Other)
  Sender: FDA-Public Use
  Company Number: AU-ROCHE-431239

PATIENT
  Age: 55 Year
  Sex: Male

DRUGS (7)
  1. CEFTRIAXONE SODIUM [Suspect]
     Indication: DRUG USE FOR UNKNOWN INDICATION
     Dosage: TWO TIMES.
     Route: 042
     Dates: start: 20041011, end: 20041101
  2. BENZYLPENICILLIN [Suspect]
     Indication: DRUG USE FOR UNKNOWN INDICATION
     Dosage: SIX TIMES.
     Route: 042
     Dates: start: 20041013, end: 20041101
  3. OMEPRAZOLE [Concomitant]
     Route: 042
     Dates: start: 20041011
  4. CLINDAMYCIN HYDROCHLORIDE [Concomitant]
     Dosage: THREE TIMES.
     Route: 042
     Dates: start: 20041015, end: 20041029
  5. METRONIDAZOLE [Concomitant]
     Dosage: TWO TIMES.
     Route: 042
     Dates: start: 20041011
  6. VANCOMYCIN HYDROCHLORIDE [Concomitant]
     Dosage: TWO TIMES.
     Route: 042
     Dates: start: 20041011
  7. PHENYTOIN SODIUM [Concomitant]
     Route: 042
     Dates: start: 20041011, end: 20041105

REACTIONS (2)
  - GRAND MAL CONVULSION [None]
  - RENAL FAILURE ACUTE [None]
